FAERS Safety Report 25819559 (Version 1)
Quarter: 2025Q3

REPORT INFORMATION
  Report Type: Spontaneous
  Country: US (occurrence: US)
  Receive Date: 20250918
  Receipt Date: 20250918
  Transmission Date: 20251021
  Serious: Yes (Other)
  Sender: TAKEDA
  Company Number: US-TAKEDA-2025TUS079244

PATIENT
  Sex: Male
  Weight: 86 kg

DRUGS (11)
  1. LIALDA [Suspect]
     Active Substance: MESALAMINE
     Indication: Colitis ulcerative
     Dosage: 1.2 GRAM, QID
     Dates: start: 1995
  2. MESALAMINE [Suspect]
     Active Substance: MESALAMINE
     Indication: Colitis ulcerative
     Dosage: 1.2 GRAM, QID
  3. MELOXICAM [Concomitant]
     Active Substance: MELOXICAM
  4. TADALAFIL [Concomitant]
     Active Substance: TADALAFIL
     Indication: Prophylaxis
  5. VITAMIN D3 [Concomitant]
     Active Substance: CHOLECALCIFEROL
  6. ASPIRIN [Concomitant]
     Active Substance: ASPIRIN
  7. ROSUVASTATIN [Concomitant]
     Active Substance: ROSUVASTATIN
  8. STOOL SOFTENER (DOCUSATE) [Concomitant]
     Active Substance: DOCUSATE
  9. VITAMIN B12 [Concomitant]
     Active Substance: CYANOCOBALAMIN
  10. MIDODRINE [Concomitant]
     Active Substance: MIDODRINE
     Indication: Blood pressure abnormal
  11. DULOXETINE [Concomitant]
     Active Substance: DULOXETINE
     Indication: Anxiety

REACTIONS (9)
  - Atrial fibrillation [Unknown]
  - Product availability issue [Unknown]
  - Product colour issue [Unknown]
  - Inability to afford medication [Unknown]
  - Bowel movement irregularity [Unknown]
  - Blood pressure abnormal [Unknown]
  - Anxiety [Unknown]
  - Balance disorder [Unknown]
  - Insurance issue [Unknown]
